FAERS Safety Report 25423361 (Version 2)
Quarter: 2025Q3

REPORT INFORMATION
  Report Type: Report from Study
  Country: CA (occurrence: CA)
  Receive Date: 20250611
  Receipt Date: 20250709
  Transmission Date: 20251020
  Serious: Yes (Other)
  Sender: TAKEDA
  Company Number: CA-TAKEDA-2025TUS052394

PATIENT
  Age: 86 Year
  Sex: Female

DRUGS (9)
  1. VEDOLIZUMAB [Suspect]
     Active Substance: VEDOLIZUMAB
     Indication: Colitis ulcerative
  2. VEDOLIZUMAB [Suspect]
     Active Substance: VEDOLIZUMAB
     Dosage: 300 MILLIGRAM, Q4WEEKS
     Dates: start: 20240412
  3. SYNTHROID [Concomitant]
     Active Substance: LEVOTHYROXINE SODIUM
  4. ATORVASTATIN [Concomitant]
     Active Substance: ATORVASTATIN
  5. MESALAMINE [Concomitant]
     Active Substance: MESALAMINE
  6. XARELTO [Concomitant]
     Active Substance: RIVAROXABAN
  7. HYDROXYCHLOROQUINE [Concomitant]
     Active Substance: HYDROXYCHLOROQUINE
  8. Jamp levetiracetam [Concomitant]
  9. PREDNISONE [Concomitant]
     Active Substance: PREDNISONE

REACTIONS (4)
  - Hip fracture [Unknown]
  - Femur fracture [Not Recovered/Not Resolved]
  - Off label use [Unknown]
  - Fall [Unknown]

NARRATIVE: CASE EVENT DATE: 20250412
